FAERS Safety Report 13994358 (Version 1)
Quarter: 2017Q3

REPORT INFORMATION
  Report Type: Other
  Country: GB (occurrence: US)
  Receive Date: 20170920
  Receipt Date: 20170920
  Transmission Date: 20171128
  Serious: Yes (Death, Life-Threatening, Other)
  Sender: FDA-Public Use
  Company Number: US-INTERNATIONAL MEDICATION SYSTEMS, LIMITED-2027029

PATIENT
  Age: 33 Year
  Sex: Female

DRUGS (8)
  1. CALCIUM CHLORIDE. [Suspect]
     Active Substance: CALCIUM CHLORIDE
  2. SODIUM BICARBONATE. [Concomitant]
     Active Substance: SODIUM BICARBONATE
  3. D50W [Concomitant]
  4. EPINEPHRINE INJECTION [Suspect]
     Active Substance: EPINEPHRINE
     Indication: PULSE ABSENT
  5. ATROPINE. [Concomitant]
     Active Substance: ATROPINE
  6. SALINE [Concomitant]
     Active Substance: SODIUM CHLORIDE
  7. INSULIN [Concomitant]
     Active Substance: INSULIN NOS
     Route: 042
  8. DIGIFAB [Concomitant]
     Active Substance: OVINE DIGOXIN IMMUNE FAB

REACTIONS (2)
  - Drug ineffective [Fatal]
  - Death [Fatal]
